FAERS Safety Report 8346384-3 (Version None)
Quarter: 2012Q2

REPORT INFORMATION
  Report Type: 
  Country: None (occurrence: None)
  Receive Date: 20120509
  Receipt Date: 20120502
  Transmission Date: 20120825
  Serious: Yes (Hospitalization)
  Sender: FDA-Public Use
  Company Number: TW-SANOFI-AVENTIS-2012SA031219

PATIENT
  Age: 71 Year
  Sex: Male

DRUGS (7)
  1. INVESTIGATIONAL DRUG [Suspect]
     Indication: ATRIAL FIBRILLATION
     Route: 048
     Dates: start: 20110927
  2. SENNOSIDE A+B [Suspect]
     Dates: start: 20071017, end: 20120413
  3. ATORVASTATIN CALCIUM [Concomitant]
     Dates: start: 20050713
  4. UROXATRAL [Suspect]
     Dates: start: 20120402
  5. AMIODARONE HCL [Suspect]
     Dates: start: 20090603
  6. IMIPRAMINE [Suspect]
     Dates: start: 20120402
  7. CALCIUM [Concomitant]
     Dates: start: 20071017, end: 20120413

REACTIONS (4)
  - HYPOKALAEMIA [None]
  - ORTHOSTATIC HYPOTENSION [None]
  - DIZZINESS [None]
  - FALL [None]
